FAERS Safety Report 10704906 (Version 1)
Quarter: 2015Q1

REPORT INFORMATION
  Report Type: Spontaneous
  Country: US (occurrence: None)
  Receive Date: 20150109
  Receipt Date: 20150109
  Transmission Date: 20150721
  Serious: Yes (Hospitalization)
  Sender: FDA-Public Use
  Company Number: None

PATIENT
  Age: 59 Year
  Sex: Male
  Weight: 79.4 kg

DRUGS (5)
  1. DOXORUBICIN HYDROCHLORIDE. [Suspect]
     Active Substance: DOXORUBICIN HYDROCHLORIDE
     Dates: end: 20141206
  2. RITUXIMAB (MOAB C2B8 ANTI CD20, CHIMERIC) [Suspect]
     Active Substance: RITUXIMAB
     Dates: end: 20141203
  3. CYCLOPHOSPHAMIDE. [Suspect]
     Active Substance: CYCLOPHOSPHAMIDE
     Dates: end: 20141207
  4. VINCRISTINE SULFATE. [Suspect]
     Active Substance: VINCRISTINE SULFATE
     Dates: end: 20141206
  5. ETOPOSIDE (VP-16) [Suspect]
     Active Substance: ETOPOSIDE
     Dates: end: 20141206

REACTIONS (18)
  - Lower gastrointestinal haemorrhage [None]
  - Diarrhoea [None]
  - Hypocalcaemia [None]
  - Anaemia [None]
  - Malaise [None]
  - Glossodynia [None]
  - Hypophosphataemia [None]
  - Nausea [None]
  - Cough [None]
  - Hypopnoea [None]
  - Hyponatraemia [None]
  - Febrile neutropenia [None]
  - Diverticulitis [None]
  - Oropharyngeal pain [None]
  - Decreased appetite [None]
  - Asthenia [None]
  - Diverticulum [None]
  - Pancytopenia [None]

NARRATIVE: CASE EVENT DATE: 20141216
